FAERS Safety Report 7130278-5 (Version None)
Quarter: 2010Q4

REPORT INFORMATION
  Report Type: 
  Country: None (occurrence: None)
  Receive Date: 20101201
  Receipt Date: 20101123
  Transmission Date: 20110411
  Serious: Yes (Other)
  Sender: FDA-Public Use
  Company Number: PHHY2010CA64559

PATIENT
  Sex: Female

DRUGS (1)
  1. ACLASTA [Suspect]
     Indication: OSTEOPOROSIS
     Dosage: 5 MG
     Dates: start: 20091126

REACTIONS (5)
  - CHILLS [None]
  - GINGIVAL GRAFT [None]
  - MYALGIA [None]
  - NAUSEA [None]
  - TOOTH DISORDER [None]
